FAERS Safety Report 7059505-X (Version None)
Quarter: 2010Q4

REPORT INFORMATION
  Report Type: 
  Country: None (occurrence: None)
  Receive Date: 20101025
  Receipt Date: 20100903
  Transmission Date: 20110411
  Serious: No
  Sender: FDA-Public Use
  Company Number: US-ASTRAZENECA-2010SE41668

PATIENT
  Sex: Female

DRUGS (1)
  1. ATENOLOL AND CHLORTHALIDONE [Suspect]
     Indication: HYPERTENSION
     Route: 048

REACTIONS (1)
  - ADVERSE DRUG REACTION [None]
